FAERS Safety Report 12679386 (Version 1)
Quarter: 2016Q3

REPORT INFORMATION
  Report Type: Spontaneous
  Country: US (occurrence: None)
  Receive Date: 20160823
  Receipt Date: 20160823
  Transmission Date: 20161109
  Serious: Yes (Other)
  Sender: FDA-Public Use
  Company Number: None

PATIENT
  Age: 46 Year
  Weight: 60.78 kg

DRUGS (4)
  1. ORAL CONTRACEPTIVE [Concomitant]
     Active Substance: UNSPECIFIED INGREDIENT
  2. VITAMIN SUPPLEMENT [Concomitant]
     Active Substance: VITAMINS
  3. CIPROFLOXACIN, 500 MG [Suspect]
     Active Substance: CIPROFLOXACIN
     Indication: URINARY TRACT INFECTION
     Dosage: 20 TABLETS TWICE A DAY
     Route: 048
     Dates: start: 20160810, end: 20160818
  4. COQ10 [Concomitant]
     Active Substance: UBIDECARENONE

REACTIONS (9)
  - Chest discomfort [None]
  - Neuralgia [None]
  - Arthralgia [None]
  - Muscle spasms [None]
  - Paraesthesia [None]
  - Feeling abnormal [None]
  - Myalgia [None]
  - Cough [None]
  - Muscular weakness [None]

NARRATIVE: CASE EVENT DATE: 20160818
